FAERS Safety Report 6283837-6 (Version None)
Quarter: 2009Q3

REPORT INFORMATION
  Report Type: 
  Country: None (occurrence: None)
  Receive Date: 20090724
  Receipt Date: 20090715
  Transmission Date: 20100115
  Serious: Yes (Other)
  Sender: FDA-Public Use
  Company Number: IN-ASTRAZENECA-2009SE04088

PATIENT
  Age: 60 Year
  Sex: Female

DRUGS (2)
  1. XYLOCAINE W/ EPINEPHRINE [Suspect]
     Indication: ANAESTHESIA
     Dosage: 4 CC GIVEN IN TWO DOSES
  2. SENSORCAINE [Suspect]
     Indication: ANAESTHESIA
     Dosage: 4CC GIVEN IN TWO DOSES

REACTIONS (5)
  - BLINDNESS [None]
  - CONJUNCTIVAL OEDEMA [None]
  - EXOPHTHALMOS [None]
  - EYELID OEDEMA [None]
  - PAIN [None]
